FAERS Safety Report 6238386-8 (Version None)
Quarter: 2009Q2

REPORT INFORMATION
  Report Type: 
  Country: None (occurrence: None)
  Receive Date: 20090622
  Receipt Date: 20090610
  Transmission Date: 20091009
  Serious: Yes (Hospitalization)
  Sender: FDA-Public Use
  Company Number: US-BIOGENIDEC-2009BI015709

PATIENT
  Age: 70 Year
  Sex: Female
  Weight: 70 kg

DRUGS (8)
  1. TYSABRI [Suspect]
     Indication: MULTIPLE SCLEROSIS
     Route: 042
     Dates: start: 20060815
  2. LISINOPRIL [Concomitant]
  3. VESICARE [Concomitant]
  4. LASIX [Concomitant]
  5. K-TAB [Concomitant]
  6. AGGRENOX [Concomitant]
  7. ZOCOR [Concomitant]
  8. LOVENOX [Concomitant]

REACTIONS (4)
  - ANAEMIA [None]
  - ARTERIOSCLEROSIS [None]
  - TACHYCARDIA [None]
  - VASCULAR PSEUDOANEURYSM [None]
